FAERS Safety Report 4539956-5 (Version None)
Quarter: 2004Q4

REPORT INFORMATION
  Report Type: 
  Country: None (occurrence: None)
  Receive Date: 20041223
  Receipt Date: 20041213
  Transmission Date: 20050328
  Serious: Yes (Hospitalization, Other)
  Sender: FDA-Public Use
  Company Number: 2004111537

PATIENT
  Age: 71 Year
  Sex: Male

DRUGS (1)
  1. NEURONTIN [Suspect]
     Indication: POLYNEUROPATHY
     Dosage: 2700 MG (900 MG, 3 IN 1 D), ORAL
     Route: 048
     Dates: start: 20040401

REACTIONS (10)
  - BALANCE DISORDER [None]
  - CONDITION AGGRAVATED [None]
  - CONFUSIONAL STATE [None]
  - MOBILITY DECREASED [None]
  - MYOCLONUS [None]
  - NEUROLOGICAL SYMPTOM [None]
  - PARAESTHESIA [None]
  - PARANEOPLASTIC SYNDROME [None]
  - PERIPHERAL COLDNESS [None]
  - POLYNEUROPATHY [None]
